FAERS Safety Report 9281347 (Version 3)
Quarter: 2013Q3

REPORT INFORMATION
  Report Type: Report from Study
  Country: CA (occurrence: CA)
  Receive Date: 20130509
  Receipt Date: 20130910
  Transmission Date: 20140515
  Serious: Yes (Other)
  Sender: FDA-Public Use
  Company Number: CA-JNJFOC-20130503868

PATIENT
  Age: 69 Year
  Sex: Male
  Weight: 79.38 kg

DRUGS (5)
  1. SIMPONI [Suspect]
     Indication: RHEUMATOID ARTHRITIS
     Route: 058
     Dates: start: 201207, end: 20130315
  2. METHOTREXATE [Concomitant]
     Route: 058
  3. METHOTREXATE [Concomitant]
     Dosage: 20-25MG
     Route: 058
  4. PLAQUENIL [Concomitant]
     Route: 048
  5. NAPROSYN [Concomitant]
     Route: 048
     Dates: start: 201304

REACTIONS (1)
  - Diffuse large B-cell lymphoma [Unknown]
